FAERS Safety Report 17307465 (Version 1)
Quarter: 2020Q1

REPORT INFORMATION
  Report Type: Spontaneous
  Country: SE (occurrence: SE)
  Receive Date: 20200123
  Receipt Date: 20200123
  Transmission Date: 20200409
  Serious: Yes (Hospitalization)
  Sender: FDA-Public Use
  Company Number: SE-MYLANLABS-2020M1006803

PATIENT
  Age: 28 Year
  Sex: Female

DRUGS (3)
  1. LERGIGAN (PROMETHAZINE HYDROCHLORIDE) [Suspect]
     Active Substance: PROMETHAZINE HYDROCHLORIDE
     Indication: PRODUCT USED FOR UNKNOWN INDICATION
     Dosage: 100 ST. LERGIGAN 25 MG
     Route: 048
     Dates: start: 20180615, end: 20180615
  2. IPREN [Suspect]
     Active Substance: IBUPROFEN
     Dosage: 150 ST. IPREN 400 MG. INTAG MELLAN 12.30-13.30
     Route: 048
     Dates: start: 20180615, end: 20180615
  3. IPREN [Suspect]
     Active Substance: IBUPROFEN
     Indication: PRODUCT USED FOR UNKNOWN INDICATION
     Dosage: 150 ST. IPREN 400 MG. INTAG CIRKA KL 21
     Route: 048
     Dates: start: 20180614, end: 20180614

REACTIONS (5)
  - Abdominal pain [Unknown]
  - Intentional self-injury [Unknown]
  - Painful respiration [Unknown]
  - Intentional overdose [Unknown]
  - Anxiety [Unknown]

NARRATIVE: CASE EVENT DATE: 20180615
